FAERS Safety Report 4764070-3 (Version None)
Quarter: 2005Q3

REPORT INFORMATION
  Report Type: 
  Country: None (occurrence: None)
  Receive Date: 20050908
  Receipt Date: 20050413
  Transmission Date: 20060218
  Serious: Yes (Hospitalization, Disabling, Other)
  Sender: FDA-Public Use
  Company Number: US-MERCK-0504USA02205

PATIENT
  Age: 54 Year
  Sex: Male
  Weight: 85 kg

DRUGS (11)
  1. VIOXX [Suspect]
     Indication: PSORIATIC ARTHROPATHY
     Route: 048
     Dates: start: 20010301, end: 20010701
  2. VIOXX [Suspect]
     Route: 048
     Dates: start: 20021201, end: 20030408
  3. ELAVIL [Concomitant]
     Route: 065
     Dates: start: 19990101
  4. STERAPRED [Concomitant]
     Route: 065
     Dates: start: 20010101
  5. ULTRAM [Concomitant]
     Route: 065
     Dates: start: 20010101
  6. MOTRIN [Concomitant]
     Route: 065
     Dates: start: 20010101
  7. FLEXERIL [Concomitant]
     Route: 065
     Dates: start: 20010101
  8. RESTORIL [Concomitant]
     Indication: INSOMNIA
     Route: 065
  9. PAXIL [Concomitant]
     Indication: STRESS
     Route: 065
  10. PAXIL [Concomitant]
     Indication: ANXIETY
     Route: 065
  11. DAYPRO [Suspect]
     Route: 065

REACTIONS (34)
  - ACUTE MYOCARDIAL INFARCTION [None]
  - ANGINA PECTORIS [None]
  - ATRIAL FIBRILLATION [None]
  - BACK PAIN [None]
  - BLOOD CHOLESTEROL INCREASED [None]
  - BLOOD GLUCOSE INCREASED [None]
  - BRONCHITIS [None]
  - CARDIAC FAILURE CONGESTIVE [None]
  - CARDIOMYOPATHY [None]
  - COLONIC POLYP [None]
  - CORONARY ARTERY DISEASE [None]
  - CORONARY ARTERY OCCLUSION [None]
  - DYSPEPSIA [None]
  - EMPHYSEMA [None]
  - EPICONDYLITIS [None]
  - FATIGUE [None]
  - GASTRITIS [None]
  - HYPERLIPIDAEMIA [None]
  - HYPERTENSION [None]
  - HYPOAESTHESIA [None]
  - LOW DENSITY LIPOPROTEIN INCREASED [None]
  - LUNG DISORDER [None]
  - MEDICATION ERROR [None]
  - MYOCARDIAL INFARCTION [None]
  - MYOCARDIAL ISCHAEMIA [None]
  - NECK PAIN [None]
  - NOCTURIA [None]
  - PERIPHERAL COLDNESS [None]
  - PHOTOPSIA [None]
  - PLEURAL EFFUSION [None]
  - PNEUMOTHORAX [None]
  - ROAD TRAFFIC ACCIDENT [None]
  - VENTRICULAR DYSFUNCTION [None]
  - WHITE BLOOD CELL COUNT DECREASED [None]
